FAERS Safety Report 8770835 (Version 1)
Quarter: 2012Q4

REPORT INFORMATION
  Report Type: 
  Country: ES (occurrence: ES)
  Receive Date: 20120906
  Receipt Date: 20120906
  Transmission Date: 20130627
  Serious: Yes (Hospitalization)
  Sender: FDA-Public Use
  Company Number: ES-PFIZER INC-2012217024

PATIENT
  Age: 61 Year
  Sex: Male

DRUGS (2)
  1. CARDURAN NEO [Suspect]
     Indication: HYPERTENSION
     Dosage: 4 mg, 1x/day
     Route: 048
     Dates: start: 2008
  2. UNSPECIFIED INGREDIENT [Interacting]
     Indication: INFLUENZA
     Dosage: 3 DF, 1x/day
     Route: 048
     Dates: start: 20120229, end: 20120229

REACTIONS (4)
  - Drug interaction [Recovered/Resolved]
  - Upper gastrointestinal haemorrhage [Recovered/Resolved]
  - Transaminases increased [Unknown]
  - Platelet count decreased [Unknown]
